FAERS Safety Report 7815070-8 (Version None)
Quarter: 2011Q4

REPORT INFORMATION
  Report Type: 
  Country: None (occurrence: None)
  Receive Date: 20111014
  Receipt Date: 20111006
  Transmission Date: 20120403
  Serious: Yes (Death, Hospitalization)
  Sender: FDA-Public Use
  Company Number: US-ALEXION-A201101506

PATIENT
  Sex: Male
  Weight: 86.168 kg

DRUGS (9)
  1. ASPIRIN [Concomitant]
     Route: 048
  2. VITAMIN D [Concomitant]
     Route: 048
  3. CYCLOSPORINE [Concomitant]
     Route: 048
  4. HYDROCHLOROTHIAZIDE [Concomitant]
     Route: 048
  5. MULTI-VITAMIN [Concomitant]
     Route: 048
  6. TENORMIN [Concomitant]
     Route: 048
  7. SOLIRIS [Suspect]
     Indication: PAROXYSMAL NOCTURNAL HAEMOGLOBINURIA
     Dosage: UNK
     Route: 042
     Dates: start: 20091119, end: 20110908
  8. LIPITOR [Concomitant]
     Route: 048
  9. FOLIC ACID [Concomitant]
     Route: 048

REACTIONS (1)
  - PNEUMONIA FUNGAL [None]
